FAERS Safety Report 9754460 (Version 1)
Quarter: 2013Q4

REPORT INFORMATION
  Report Type: Spontaneous
  Country: IT (occurrence: IT)
  Receive Date: 20131213
  Receipt Date: 20131213
  Transmission Date: 20140711
  Serious: Yes (Other)
  Sender: FDA-Public Use
  Company Number: IT-ASTRAZENECA-2013SE89021

PATIENT
  Sex: Female

DRUGS (1)
  1. QUETIAPINE (NON-AZ PRODUCT) [Suspect]
     Route: 065

REACTIONS (4)
  - Abdominal pain upper [Recovering/Resolving]
  - Chest pain [Recovering/Resolving]
  - Malaise [Recovering/Resolving]
  - Off label use [Recovering/Resolving]
